FAERS Safety Report 10490023 (Version 2)
Quarter: 2014Q4

REPORT INFORMATION
  Report Type: Spontaneous
  Country: US (occurrence: None)
  Receive Date: 20140815
  Receipt Date: 20141009
  Transmission Date: 20150528
  Serious: Yes (Other)
  Sender: FDA-Public Use
  Company Number: ADR-2014-00583

PATIENT
  Age: 46 Year
  Sex: Female

DRUGS (10)
  1. ALBUTEROL. [Suspect]
     Active Substance: ALBUTEROL
     Dosage: 2 PUFFS EVERY SIX HOURS AS NEEDED?
  2. MEDICAL MARIJUANA [Suspect]
     Active Substance: CANNABIS SATIVA SUBSP. INDICA TOP
  3. BUPIVACAINE INTRATHECAL [Suspect]
     Active Substance: BUPIVACAINE
  4. BACLOFEN INTRATHECAL [Suspect]
     Active Substance: BACLOFEN
  5. OXYCODONE [Suspect]
     Active Substance: OXYCODONE
     Dosage: 2 TABS EVERY 4 HRS AS NEEDED
  6. HYDROMORPHONE HCL [Suspect]
     Active Substance: HYDROMORPHONE HYDROCHLORIDE
     Dosage: ONE TAB DAILY
  7. CLONAZEPAM. [Suspect]
     Active Substance: CLONAZEPAM
     Dosage: 1 MG 3 IN 1 D AS NEEDED
  8. FENTANYL. [Suspect]
     Active Substance: FENTANYL
     Dosage: 0.05995 MG
  9. TIZANIDINE HCL OR [Suspect]
     Active Substance: TIZANIDINE HYDROCHLORIDE
  10. DILAUDID [Suspect]
     Active Substance: HYDROMORPHONE HYDROCHLORIDE

REACTIONS (8)
  - Implant site swelling [None]
  - Incision site infection [None]
  - Gait disturbance [None]
  - Incision site erythema [None]
  - Implant site extravasation [None]
  - Burning sensation [None]
  - Incision site pain [None]
  - Infusion site mass [None]
